FAERS Safety Report 17663541 (Version 1)
Quarter: 2020Q2

REPORT INFORMATION
  Report Type: Spontaneous
  Country: IN (occurrence: US)
  Receive Date: 20200413
  Receipt Date: 20200413
  Transmission Date: 20200713
  Serious: Yes (Life-Threatening, Hospitalization, Other)
  Sender: FDA-Public Use
  Company Number: IN-009507513-2004USA001609

PATIENT
  Age: 23 Year
  Sex: Female
  Weight: 36.01 kg

DRUGS (11)
  1. BEDAQUILINE [Suspect]
     Active Substance: BEDAQUILINE
     Indication: PULMONARY TUBERCULOSIS
     Dosage: 100 MG, TIW
     Route: 048
     Dates: start: 20191127
  2. CLOFAZIMINE [Suspect]
     Active Substance: CLOFAZIMINE
     Indication: PULMONARY TUBERCULOSIS
     Dosage: 100 MG, QD
     Dates: start: 20191127
  3. AMOXI/CLAV [Suspect]
     Active Substance: AMOXICILLIN\CLAVULANATE POTASSIUM
     Indication: PULMONARY TUBERCULOSIS
     Dosage: 1250 MG, QD
     Dates: start: 20191127
  4. LINEZOLID. [Suspect]
     Active Substance: LINEZOLID
     Indication: PULMONARY TUBERCULOSIS
     Dosage: 600 MG, QD
     Dates: start: 20191127
  5. FERROUS SULFATE (+) FOLIC ACID [Concomitant]
     Indication: HAEMOGLOBIN DECREASED
     Dosage: UNK
     Dates: start: 20191127
  6. ASCORBIC ACID (+) ERGOCALCIFEROL (+) FOLIC ACID (+) VITAMIN A (+) VITA [Concomitant]
     Dosage: UNK
     Dates: start: 20191127
  7. PRIMAXIN IV [Suspect]
     Active Substance: CILASTATIN SODIUM\IMIPENEM
     Indication: PULMONARY TUBERCULOSIS
     Dosage: 1 G BID
     Route: 042
     Dates: start: 20191127
  8. DELAMANID [Suspect]
     Active Substance: DELAMANID
     Indication: PULMONARY TUBERCULOSIS
     Dosage: 100 MG, BID (50 MG X2)
     Route: 048
     Dates: start: 20191127
  9. METOCLOPRAMIDE. [Concomitant]
     Active Substance: METOCLOPRAMIDE
     Indication: PROPHYLAXIS OF NAUSEA AND VOMITING
     Dosage: UNK
     Dates: start: 20191127
  10. PYRIDOXINE [Concomitant]
     Active Substance: PYRIDOXINE
     Indication: PROPHYLAXIS
     Dosage: UNK
     Dates: start: 20191127
  11. OMEPRAZOLE. [Concomitant]
     Active Substance: OMEPRAZOLE
     Dosage: UNK
     Dates: start: 20191127

REACTIONS (5)
  - Anaemia [Recovering/Resolving]
  - Syncope [Unknown]
  - Blood pressure decreased [Unknown]
  - Right ventricular failure [Recovering/Resolving]
  - Aspartate aminotransferase abnormal [Unknown]

NARRATIVE: CASE EVENT DATE: 20191127
